FAERS Safety Report 13880595 (Version 1)
Quarter: 2017Q3

REPORT INFORMATION
  Report Type: Spontaneous
  Country: FR (occurrence: FR)
  Receive Date: 20170818
  Receipt Date: 20170818
  Transmission Date: 20171127
  Serious: Yes (Hospitalization, Other)
  Sender: FDA-Public Use
  Company Number: FR-PFIZER INC-2017355566

PATIENT
  Age: 76 Year
  Sex: Female

DRUGS (5)
  1. ZYKADIA [Interacting]
     Active Substance: CERITINIB
     Indication: COLORECTAL CANCER METASTATIC
     Dosage: 150 MG, 3X/DAY
     Route: 048
     Dates: start: 20170718, end: 20170721
  2. AUGMENTIN [Concomitant]
     Active Substance: AMOXICILLIN\CLAVULANATE POTASSIUM
     Dosage: UNK
     Dates: end: 20170721
  3. CORDARONE [Suspect]
     Active Substance: AMIODARONE HYDROCHLORIDE
     Indication: ATRIAL FIBRILLATION
     Dosage: 200 MG, (5 TIMES IN A WEEK)
     Route: 048
     Dates: end: 20170621
  4. LEVOTHYROX [Concomitant]
     Active Substance: LEVOTHYROXINE
     Dosage: UNK
  5. XARELTO [Concomitant]
     Active Substance: RIVAROXABAN
     Dosage: UNK
     Dates: start: 20170726

REACTIONS (5)
  - Drug interaction [Unknown]
  - Sinus bradycardia [Recovered/Resolved with Sequelae]
  - Wound infection [Unknown]
  - Hyperkalaemia [Unknown]
  - Pulmonary arterial hypertension [Unknown]

NARRATIVE: CASE EVENT DATE: 20170706
